FAERS Safety Report 16610224 (Version 1)
Quarter: 2019Q3

REPORT INFORMATION
  Report Type: Spontaneous
  Country: US (occurrence: US)
  Receive Date: 20190721
  Receipt Date: 20190721
  Transmission Date: 20191004
  Serious: Yes (Disabling)
  Sender: FDA-Public Use
  Company Number: None

PATIENT
  Age: 55 Year
  Sex: Female
  Weight: 74.7 kg

DRUGS (10)
  1. LASIX [Concomitant]
     Active Substance: FUROSEMIDE
  2. COLACE [Concomitant]
     Active Substance: DOCUSATE SODIUM
  3. BENADRYL [Concomitant]
     Active Substance: DIPHENHYDRAMINE HYDROCHLORIDE
  4. ALDACTONE [Concomitant]
     Active Substance: SPIRONOLACTONE
  5. VITAMIN D [Concomitant]
     Active Substance: VITAMIN D NOS
  6. PERJETA [Suspect]
     Active Substance: PERTUZUMAB
     Indication: HER-2 POSITIVE BREAST CANCER
     Dosage: ?          OTHER ROUTE:I V INFUSION?
     Route: 042
     Dates: start: 20180626, end: 20181108
  7. KAMARA [Concomitant]
  8. CALCIUM [Concomitant]
     Active Substance: CALCIUM
  9. LORSTAN [Concomitant]
  10. TOPROL XL [Concomitant]
     Active Substance: METOPROLOL SUCCINATE

REACTIONS (5)
  - Swelling face [None]
  - Ejection fraction decreased [None]
  - Cardiac failure congestive [None]
  - Cough [None]
  - Pulmonary congestion [None]

NARRATIVE: CASE EVENT DATE: 20181203
